FAERS Safety Report 11545703 (Version 2)
Quarter: 2015Q4

REPORT INFORMATION
  Report Type: Report from Study
  Country: US (occurrence: US)
  Receive Date: 20150924
  Receipt Date: 20151006
  Transmission Date: 20160304
  Serious: Yes (Other)
  Sender: FDA-Public Use
  Company Number: US-AMGEN-USASL2015091538

PATIENT
  Age: 73 Year
  Sex: Female
  Weight: 52.61 kg

DRUGS (8)
  1. SENSIPAR [Suspect]
     Active Substance: CINACALCET HYDROCHLORIDE
     Indication: HYPERPARATHYROIDISM
     Dosage: 30 MG, BID
     Route: 048
     Dates: start: 20150714, end: 20150821
  2. PRAVASTATIN [Concomitant]
     Active Substance: PRAVASTATIN\PRAVASTATIN SODIUM
     Dosage: 20 MG, QD
  3. VITAMIN D3 [Concomitant]
     Active Substance: CHOLECALCIFEROL
     Dosage: 1000 IU, QD
  4. ASA [Concomitant]
     Active Substance: ASPIRIN
     Dosage: 81 MG, QD
  5. METOPROLOL [Concomitant]
     Active Substance: METOPROLOL
  6. DIGOXIN. [Concomitant]
     Active Substance: DIGOXIN
     Dosage: 0.125 MG, QD
  7. LEVOTHYROXINE. [Concomitant]
     Active Substance: LEVOTHYROXINE
     Dosage: 50 MUG, QD
  8. WOMEN^S MULTIVITE [Concomitant]
     Dosage: UNK

REACTIONS (10)
  - Cardiac flutter [Unknown]
  - Dry mouth [Unknown]
  - Dyspnoea [Unknown]
  - Heart rate decreased [Unknown]
  - Nausea [Unknown]
  - Dizziness [Unknown]
  - Somnolence [Unknown]
  - Throat irritation [Unknown]
  - Nervousness [Unknown]
  - Hypotension [Unknown]
